FAERS Safety Report 4562798-1 (Version None)
Quarter: 2005Q1

REPORT INFORMATION
  Report Type: 
  Country: None (occurrence: None)
  Receive Date: 20050121
  Receipt Date: 20050107
  Transmission Date: 20050727
  Serious: Yes (Hospitalization)
  Sender: FDA-Public Use
  Company Number: 027-0981-M0000105

PATIENT
  Age: 66 Year
  Sex: Male
  Weight: 74 kg

DRUGS (4)
  1. ATORVASTATIN (ATORVASTATIN) [Suspect]
     Indication: HYPERCHOLESTEROLAEMIA
     Dosage: 10  MG (DAILY) ORAL
     Route: 048
     Dates: start: 19981001, end: 19981129
  2. WARFARIN SODIUM [Concomitant]
  3. SPIRONOLACTONE [Concomitant]
  4. TAMSULOSIN (TAMSULOSIN) [Concomitant]

REACTIONS (5)
  - BILE DUCT STONE [None]
  - CHOLANGITIS [None]
  - CHOLELITHIASIS [None]
  - CONDITION AGGRAVATED [None]
  - JAUNDICE CHOLESTATIC [None]
